FAERS Safety Report 5147025-9 (Version None)
Quarter: 2006Q4

REPORT INFORMATION
  Report Type: 
  Country: None (occurrence: None)
  Receive Date: 20061109
  Receipt Date: 20061012
  Transmission Date: 20070319
  Serious: Yes (Other)
  Sender: FDA-Public Use
  Company Number: CH-ELI_LILLY_AND_COMPANY-CH200610002438

PATIENT
  Age: 21 Year
  Sex: Female

DRUGS (3)
  1. FLUCTINE [Suspect]
     Indication: DEPRESSION
     Dosage: 60 MG, DAILY (1/D)
     Route: 048
     Dates: start: 20040101
  2. ANTABUSE [Concomitant]
     Dosage: 400 MG, 3/W
     Dates: start: 20060517, end: 20060707
  3. SEROQUEL [Concomitant]
     Indication: PERSONALITY DISORDER
     Dosage: 100 MG, DAILY (1/D)
     Dates: start: 20060424

REACTIONS (6)
  - ACNE [None]
  - BLOOD UREA DECREASED [None]
  - LYMPHOCYTE PERCENTAGE INCREASED [None]
  - MONOCYTE PERCENTAGE INCREASED [None]
  - NEUTROPHIL COUNT DECREASED [None]
  - SKIN DISORDER [None]
